FAERS Safety Report 8432299-9 (Version None)
Quarter: 2012Q2

REPORT INFORMATION
  Report Type: 
  Country: None (occurrence: None)
  Receive Date: 20120613
  Receipt Date: 20120608
  Transmission Date: 20120825
  Serious: Yes (Hospitalization)
  Sender: FDA-Public Use
  Company Number: PHHY2012BR049977

PATIENT
  Sex: Female

DRUGS (8)
  1. FORMOTEROL FUMARATE [Suspect]
     Indication: CHRONIC OBSTRUCTIVE PULMONARY DISEASE
     Dosage: 2 DF, DAILY
  2. FUROSEMIDE [Concomitant]
     Indication: DIURETIC THERAPY
     Dosage: 40 MG, BID
  3. OMEPRAZOLE [Concomitant]
     Indication: GASTRIC ULCER
     Dosage: 1 DF, UNK
  4. APRESOLINE [Concomitant]
  5. BETAHISTINE [Concomitant]
     Indication: LABYRINTHITIS
     Dosage: 24 MG, QD
  6. ALDACTONE [Concomitant]
     Indication: DIURETIC THERAPY
     Dosage: 25 MG, QD
     Dates: start: 20120301
  7. CAPTOPRIL [Concomitant]
     Indication: BLOOD PRESSURE
     Dosage: 25 MG, BID
     Dates: start: 20120301
  8. ASPIRIN [Concomitant]
     Indication: PLATELET AGGREGATION
     Dosage: 100 MG, QD

REACTIONS (2)
  - CHRONIC OBSTRUCTIVE PULMONARY DISEASE [None]
  - INCORRECT DOSE ADMINISTERED [None]
